FAERS Safety Report 5470956-7 (Version None)
Quarter: 2007Q3

REPORT INFORMATION
  Report Type: 
  Country: None (occurrence: None)
  Receive Date: 20070925
  Receipt Date: 20070919
  Transmission Date: 20080115
  Serious: Yes (Other)
  Sender: FDA-Public Use
  Company Number: CHPA2007US03653

PATIENT
  Age: 80 Year
  Sex: Male
  Weight: 74.8 kg

DRUGS (6)
  1. BENEFIBER W/WHEAT DEXTRIN (NCH) (WHEAT DEXTRIN) POWDER [Suspect]
     Indication: NUTRITIONAL SUPPORT
     Dosage: 2 TSP, TID, ORAL
     Route: 048
     Dates: start: 20060601
  2. VESICARE [Concomitant]
  3. ACIPHEX [Concomitant]
  4. PLAVIX [Concomitant]
  5. FISH OIL [Concomitant]
  6. LACTULOSE [Concomitant]

REACTIONS (7)
  - ABDOMINAL DISTENSION [None]
  - CARDIAC PACEMAKER INSERTION [None]
  - DRY MOUTH [None]
  - KIDNEY INFECTION [None]
  - NEUROPATHY PERIPHERAL [None]
  - PROSTATIC DISORDER [None]
  - RETINAL HAEMORRHAGE [None]
